FAERS Safety Report 6228130-2 (Version None)
Quarter: 2009Q2

REPORT INFORMATION
  Report Type: 
  Country: None (occurrence: None)
  Receive Date: 20090612
  Receipt Date: 20090607
  Transmission Date: 20091009
  Serious: Yes (Hospitalization)
  Sender: FDA-Public Use
  Company Number: US-GENENTECH-281833

PATIENT
  Sex: Female

DRUGS (4)
  1. PLACEBO [Suspect]
     Indication: COLORECTAL CANCER METASTATIC
     Dosage: 150 UNK, QD
     Route: 048
     Dates: start: 20090313
  2. AVASTIN [Suspect]
     Indication: COLORECTAL CANCER METASTATIC
  3. FLUOROURACIL [Suspect]
     Indication: COLORECTAL CANCER METASTATIC
     Dosage: UNK
  4. CHEMOTHERAPY (UNK INGREDIENTS) [Suspect]
     Indication: COLORECTAL CANCER METASTATIC

REACTIONS (1)
  - CHEST PAIN [None]
